FAERS Safety Report 14578202 (Version 1)
Quarter: 2018Q1

REPORT INFORMATION
  Report Type: Spontaneous
  Country: SK (occurrence: SK)
  Receive Date: 20180227
  Receipt Date: 20180227
  Transmission Date: 20180509
  Serious: Yes (Death, Other)
  Sender: FDA-Public Use
  Company Number: SK-BAUSCH-BL-2018-005037

PATIENT
  Age: 71 Year
  Sex: Male

DRUGS (4)
  1. GEMCITABINE [Suspect]
     Active Substance: GEMCITABINE\GEMCITABINE HYDROCHLORIDE
     Indication: PANCREATIC CARCINOMA METASTATIC
     Route: 042
     Dates: start: 20161220
  2. PACLITAX NAB [Suspect]
     Active Substance: PACLITAXEL
     Indication: PANCREATIC CARCINOMA METASTATIC
     Route: 042
     Dates: start: 20161220
  3. CALCIUM FOLINATE [Suspect]
     Active Substance: LEUCOVORIN CALCIUM
     Indication: PANCREATIC CARCINOMA METASTATIC
     Route: 065
  4. FLUOROURACIL. [Suspect]
     Active Substance: FLUOROURACIL
     Indication: PANCREATIC CARCINOMA METASTATIC
     Dosage: (DAY 1-5)
     Route: 042

REACTIONS (13)
  - Abdominal pain [Fatal]
  - Pancreatic carcinoma metastatic [Fatal]
  - Ascites [Fatal]
  - Leukocyturia [Fatal]
  - Hepatotoxicity [Fatal]
  - Thrombocytopenia [Fatal]
  - Constipation [Fatal]
  - Bacteriuria [Fatal]
  - Venous thrombosis [Fatal]
  - Malignant neoplasm progression [Fatal]
  - Dysuria [Fatal]
  - Dyspnoea [Fatal]
  - Oedema peripheral [Fatal]

NARRATIVE: CASE EVENT DATE: 201705
